FAERS Safety Report 21609980 (Version 1)
Quarter: 2022Q4

REPORT INFORMATION
  Report Type: Spontaneous
  Country: US (occurrence: US)
  Receive Date: 20221117
  Receipt Date: 20221117
  Transmission Date: 20230113
  Serious: Yes (Other)
  Sender: FDA-Public Use
  Company Number: US-SA-SAC20221114001583

PATIENT
  Sex: Male
  Weight: 81.6 kg

DRUGS (25)
  1. FABRAZYME [Suspect]
     Active Substance: AGALSIDASE BETA
     Indication: Fabry^s disease
     Dosage: 85MG, QOW
     Route: 042
     Dates: start: 20100217
  2. HEPARIN [Concomitant]
     Active Substance: HEPARIN SODIUM
  3. DIPHENHYDRAMINE HYDROCHLOROIDE [Concomitant]
  4. DIPHENHYDRAMINE [Concomitant]
     Active Substance: DIPHENHYDRAMINE
  5. EPINEPHRINE [Concomitant]
     Active Substance: EPINEPHRINE
  6. FLUTICASONE PROPIONATE [Concomitant]
     Active Substance: FLUTICASONE PROPIONATE
  7. HERBALS\PLANTAGO OVATA SEED COAT [Concomitant]
     Active Substance: HERBALS\PLANTAGO OVATA SEED COAT
  8. PROGRAF [Concomitant]
     Active Substance: TACROLIMUS
  9. TRAMADOL HCL [Concomitant]
     Active Substance: TRAMADOL HYDROCHLORIDE
  10. STERILE WATER [Concomitant]
     Active Substance: WATER
  11. VITAMIN B COMPLEX [Concomitant]
     Active Substance: CYANOCOBALAMIN\DEXPANTHENOL\NIACINAMIDE\PYRIDOXINE HYDROCHLORIDE\RIBOFLAVIN 5^-PHOSPHATE SODIUM\THIA
  12. DIPHENOXYLATE [Concomitant]
     Active Substance: DIPHENOXYLATE
  13. ATROPINE [Concomitant]
     Active Substance: ATROPINE
  14. LORATADINE [Concomitant]
     Active Substance: LORATADINE
  15. SYNTHROID [Concomitant]
     Active Substance: LEVOTHYROXINE SODIUM
  16. GABAPENTIN [Concomitant]
     Active Substance: GABAPENTIN
  17. VITAMIN D3 [Concomitant]
     Active Substance: CHOLECALCIFEROL
  18. SODIUM CHLORIDE [Concomitant]
     Active Substance: SODIUM CHLORIDE
  19. LIDOCAINE [Concomitant]
     Active Substance: LIDOCAINE
  20. PRASTERONE [Concomitant]
     Active Substance: PRASTERONE
  21. PARICALCITOL [Concomitant]
     Active Substance: PARICALCITOL
  22. VENLAFAXINE [Concomitant]
     Active Substance: VENLAFAXINE HYDROCHLORIDE
  23. MUPIROCIN [Concomitant]
     Active Substance: MUPIROCIN
  24. LIDOCAINE [Concomitant]
     Active Substance: LIDOCAINE
  25. SODIUM CHLORIDE [Concomitant]
     Active Substance: SODIUM CHLORIDE

REACTIONS (1)
  - Bradycardia [Unknown]
